FAERS Safety Report 7922036-6 (Version None)
Quarter: 2011Q4

REPORT INFORMATION
  Report Type: 
  Country: None (occurrence: None)
  Receive Date: 20111117
  Receipt Date: 20111109
  Transmission Date: 20120403
  Serious: Yes (Hospitalization, Other)
  Sender: FDA-Public Use
  Company Number: US-ASTRAZENECA-2010SE37063

PATIENT
  Age: 62 Year
  Sex: Male
  Weight: 70.3 kg

DRUGS (14)
  1. NEXIUM [Suspect]
     Indication: GASTROOESOPHAGEAL REFLUX DISEASE
     Route: 048
     Dates: start: 20050101
  2. CYCLOBENZAPRINE [Concomitant]
  3. METFORMIN HCL [Concomitant]
  4. SPIRIVA [Concomitant]
  5. OMEPRAZOLE [Concomitant]
     Route: 048
  6. ALBUTEROL [Concomitant]
  7. FAMOTIDINE [Concomitant]
  8. SYMBICORT [Suspect]
     Indication: CHRONIC OBSTRUCTIVE PULMONARY DISEASE
     Dosage: TOTAL DAILY DOSAGE: 320 MCG: 160/4.5 UG, TWO TIMES A DAY.
     Route: 055
     Dates: start: 20080101
  9. PRAVASTATIN [Concomitant]
  10. FLUOXETINE HCL [Concomitant]
  11. LISINOPRIL [Concomitant]
     Route: 048
  12. PROVENTIL [Concomitant]
  13. ADVAIR DISKUS 100/50 [Concomitant]
  14. TRAZODONE HCL [Concomitant]

REACTIONS (2)
  - NEOPLASM MALIGNANT [None]
  - TONSIL CANCER [None]
